FAERS Safety Report 13955420 (Version 1)
Quarter: 2017Q3

REPORT INFORMATION
  Report Type: Spontaneous
  Country: US (occurrence: US)
  Receive Date: 20170911
  Receipt Date: 20170911
  Transmission Date: 20171128
  Serious: No
  Sender: FDA-Public Use
  Company Number: US-LEXICON PHARMACEUTICALS, INC-17-1606-00709

PATIENT
  Age: 65 Year
  Sex: Male

DRUGS (10)
  1. CREON [Concomitant]
     Active Substance: PANCRELIPASE AMYLASE\PANCRELIPASE LIPASE\PANCRELIPASE PROTEASE
  2. VITAMIN A [Concomitant]
     Active Substance: VITAMIN A
  3. TELOTRISTAT ETHYL [Suspect]
     Active Substance: TELOTRISTAT ETHYL
     Indication: CARCINOID SYNDROME
     Route: 048
     Dates: start: 20170719, end: 2017
  4. VITAMIN D [Concomitant]
  5. IRON [Concomitant]
     Active Substance: IRON
  6. CYANAOCOBALAM [Concomitant]
  7. LOMOTIL [Concomitant]
     Active Substance: ATROPINE SULFATE\DIPHENOXYLATE HYDROCHLORIDE
  8. TELOTRISTAT ETHYL [Suspect]
     Active Substance: TELOTRISTAT ETHYL
     Dosage: 250 MG Q 8 HOURS
     Route: 048
     Dates: start: 2017
  9. PEPCID [Concomitant]
     Active Substance: FAMOTIDINE
  10. SOMATULINE [Concomitant]
     Active Substance: LANREOTIDE ACETATE

REACTIONS (2)
  - Diarrhoea [Unknown]
  - Off label use [Unknown]

NARRATIVE: CASE EVENT DATE: 2017
